FAERS Safety Report 16091850 (Version 1)
Quarter: 2019Q1

REPORT INFORMATION
  Report Type: Spontaneous
  Country: ES (occurrence: ES)
  Receive Date: 20190319
  Receipt Date: 20190319
  Transmission Date: 20190418
  Serious: Yes (Other)
  Sender: FDA-Public Use
  Company Number: ES-BAYER-2019-022224

PATIENT
  Age: 66 Year
  Sex: Male

DRUGS (3)
  1. STIVARGA [Suspect]
     Active Substance: REGORAFENIB
     Indication: METASTASES TO LIVER
     Dosage: 120 MG, QD
  2. OMEPRAZOLE. [Concomitant]
     Active Substance: OMEPRAZOLE
  3. STIVARGA [Suspect]
     Active Substance: REGORAFENIB
     Indication: ADENOCARCINOMA OF COLON
     Dosage: UNK
     Dates: start: 201506

REACTIONS (14)
  - Metastases to liver [None]
  - Decreased appetite [Recovered/Resolved]
  - Performance status decreased [None]
  - Asthenia [None]
  - Skin toxicity [Recovered/Resolved]
  - Mediastinal mass [None]
  - Pulmonary mass [None]
  - Skin toxicity [None]
  - Decreased appetite [None]
  - Diarrhoea [None]
  - Carcinoembryonic antigen increased [None]
  - Asthenia [Recovered/Resolved]
  - Hepatic lesion [None]
  - Hepatic mass [None]
